FAERS Safety Report 14247566 (Version 3)
Quarter: 2021Q4

REPORT INFORMATION
  Report Type: Spontaneous
  Country: CA (occurrence: CA)
  Receive Date: 20171204
  Receipt Date: 20211121
  Transmission Date: 20220303
  Serious: Yes (Life-Threatening, Hospitalization)
  Sender: FDA-Public Use
  Company Number: CA-009507513-1712CAN000052

PATIENT
  Age: 44 Year
  Sex: Female
  Weight: 69 kg

DRUGS (22)
  1. EMEND [Suspect]
     Active Substance: APREPITANT
     Indication: Antiemetic supportive care
     Dosage: 80 MG, 1 EVERY 1 (DAY) ON DAYS 2 AND 3
     Route: 048
  2. EMEND [Suspect]
     Active Substance: APREPITANT
     Indication: Premedication
     Dosage: 125 MG, QD
     Route: 048
  3. DEXAMETHASONE [Suspect]
     Active Substance: DEXAMETHASONE
     Indication: Premedication
     Dosage: 4.0 MG, 2 EVERY 1 (DAYS) ON DAYS 2 AND 3
     Route: 048
  4. DEXAMETHASONE [Suspect]
     Active Substance: DEXAMETHASONE
     Indication: Antiemetic supportive care
     Dosage: 12.0 MG, UNK
  5. SODIUM CHLORIDE [Suspect]
     Active Substance: SODIUM CHLORIDE
     Indication: Medication dilution
     Dosage: (900MG/100ML),100 ML, 1 EVERY 3 WEEKS
     Route: 042
     Dates: start: 20160512
  6. CYCLOPHOSPHAMIDE [Suspect]
     Active Substance: CYCLOPHOSPHAMIDE
     Indication: Triple negative breast cancer
     Dosage: 890 MG, Q3W, 2000 MG/VIAL
     Route: 042
  7. CYCLOPHOSPHAMIDE [Suspect]
     Active Substance: CYCLOPHOSPHAMIDE
     Dosage: 890 MG, Q3W, 2000 MG/VIAL
     Route: 042
  8. CYCLOPHOSPHAMIDE [Suspect]
     Active Substance: CYCLOPHOSPHAMIDE
     Dosage: 890 MG, Q3W, 2000 MG/VIAL
     Route: 042
     Dates: start: 20160607
  9. CYCLOPHOSPHAMIDE [Suspect]
     Active Substance: CYCLOPHOSPHAMIDE
     Dosage: VIAL; IN NS 100 ML; 500 MG/M2;FEC CYCLE-3
     Route: 042
     Dates: start: 20160512
  10. CYCLOPHOSPHAMIDE [Suspect]
     Active Substance: CYCLOPHOSPHAMIDE
     Dosage: VIAL; IN NS 100 ML; 500 MG/M2;FEC CYCLE-3
     Route: 042
     Dates: start: 20160607
  11. PEGFILGRASTIM [Suspect]
     Active Substance: PEGFILGRASTIM
     Indication: Product used for unknown indication
     Dosage: 6.0 MG, 24 HOURS POST CHEMOTHERAPY
     Route: 058
  12. ONDANSETRON [Suspect]
     Active Substance: ONDANSETRON
     Indication: Premedication
     Dosage: 8.0 MG, UNK
     Route: 048
  13. ONDANSETRON [Suspect]
     Active Substance: ONDANSETRON
     Indication: Antiemetic supportive care
     Dosage: UNK
     Route: 048
  14. METOCLOPRAMIDE [Suspect]
     Active Substance: METOCLOPRAMIDE
     Indication: Antiemetic supportive care
     Dosage: 10.0 MG, AS REQUIRED/ Q4-6H PRN
     Route: 048
  15. FLUOROURACIL [Suspect]
     Active Substance: FLUOROURACIL
     Indication: Triple negative breast cancer
     Dosage: 875.0 MG, CYCLICAL
     Route: 065
     Dates: start: 20160512
  16. FLUOROURACIL [Suspect]
     Active Substance: FLUOROURACIL
     Dosage: 500 MG/M2; FEC CYCLE-3
     Route: 065
     Dates: start: 20160512
  17. EPIRUBICIN [Suspect]
     Active Substance: EPIRUBICIN
     Indication: Triple negative breast cancer
     Dosage: 177.0 MG, CYCLICAL, INTRAVENOUS SOLUTION
     Route: 065
  18. EPIRUBICIN [Suspect]
     Active Substance: EPIRUBICIN
     Dosage: 177.0 MG, CYCLICAL, SOLUTION INTRAVENOUS
     Route: 065
  19. EPIRUBICIN [Suspect]
     Active Substance: EPIRUBICIN
     Dosage: 177 MG, 1 EVERY 1 (CYCLICAL)
     Route: 065
     Dates: start: 20160512
  20. EPIRUBICIN [Suspect]
     Active Substance: EPIRUBICIN
     Dosage: 100 MG/M2; FEC CYCLE-3
     Route: 065
     Dates: start: 20160512
  21. COD LIVER OIL [Concomitant]
     Active Substance: COD LIVER OIL
     Indication: Product used for unknown indication
     Dosage: UNK, QD
     Route: 048
  22. BETAMETHASONE VALERATE [Concomitant]
     Active Substance: BETAMETHASONE VALERATE
     Indication: Product used for unknown indication
     Dosage: UNK, QD
     Route: 065

REACTIONS (3)
  - Polydipsia [Recovering/Resolving]
  - Flushing [Recovered/Resolved]
  - Hyponatraemia [Recovered/Resolved]

NARRATIVE: CASE EVENT DATE: 20160514
